FAERS Safety Report 15000655 (Version 1)
Quarter: 2018Q2

REPORT INFORMATION
  Report Type: Spontaneous
  Country: US (occurrence: US)
  Receive Date: 20180612
  Receipt Date: 20180612
  Transmission Date: 20180711
  Serious: Yes (Disabling)
  Sender: FDA-Public Use
  Company Number: US-PFIZER INC-2018236708

PATIENT
  Age: 9 Decade
  Sex: Female

DRUGS (2)
  1. ZYVOX [Suspect]
     Active Substance: LINEZOLID
     Indication: LOWER RESPIRATORY TRACT INFECTION
  2. ZYVOX [Suspect]
     Active Substance: LINEZOLID
     Indication: LUNG INFECTION
     Dosage: 600 MG, UNK
     Dates: start: 201806

REACTIONS (2)
  - Product use complaint [Not Recovered/Not Resolved]
  - Dysphagia [Not Recovered/Not Resolved]

NARRATIVE: CASE EVENT DATE: 201806
